FAERS Safety Report 5122869-8 (Version None)
Quarter: 2006Q4

REPORT INFORMATION
  Report Type: 
  Country: None (occurrence: None)
  Receive Date: 20061005
  Receipt Date: 20060922
  Transmission Date: 20070319
  Serious: Yes (Other)
  Sender: FDA-Public Use
  Company Number: 2006114600

PATIENT
  Age: 52 Year
  Sex: Female
  Weight: 54.4316 kg

DRUGS (7)
  1. CHANTIX [Suspect]
     Indication: SMOKING CESSATION THERAPY
     Dates: start: 20060904
  2. MULTI-VITAMINS [Concomitant]
  3. LAXATIVES (LAXATIVES) [Concomitant]
  4. CALCIUM (CALCIUM) [Concomitant]
  5. VITAMIN C (VITAMIN C) [Concomitant]
  6. CYANOCOBALAMIN [Concomitant]
  7. SPIRULINA (SPIRULINA) [Concomitant]

REACTIONS (1)
  - PANCREATIC MASS [None]
